FAERS Safety Report 5968951-4 (Version None)
Quarter: 2008Q4

REPORT INFORMATION
  Report Type: 
  Country: None (occurrence: None)
  Receive Date: 20081126
  Receipt Date: 20081118
  Transmission Date: 20090506
  Serious: Yes (Death, Hospitalization)
  Sender: FDA-Public Use
  Company Number: SE-WYE-G02592808

PATIENT
  Sex: Male

DRUGS (9)
  1. TAZOCIN [Suspect]
     Indication: INFECTION
     Route: 042
     Dates: start: 20081010, end: 20081012
  2. OXYCONTIN [Concomitant]
  3. LEVOTHYROXINE SODIUM [Concomitant]
     Dosage: 75 MICROGRAM, DOSE FREQUENCY UNKNOWN
  4. BETABION [Concomitant]
  5. PROPAVAN [Concomitant]
  6. SCHERIPROCT N [Concomitant]
  7. OXASCAND [Concomitant]
  8. ALVEDON [Concomitant]
  9. ATROVENT [Concomitant]

REACTIONS (1)
  - RENAL FAILURE [None]
